FAERS Safety Report 4299873-5 (Version None)
Quarter: 2004Q1

REPORT INFORMATION
  Report Type: 
  Country: None (occurrence: None)
  Receive Date: 20040217
  Receipt Date: 20040131
  Transmission Date: 20041129
  Serious: Yes (Death)
  Sender: FDA-Public Use
  Company Number: 2004IC000021

PATIENT
  Age: 31 Year
  Sex: 0

DRUGS (2)
  1. DALMANE [Suspect]
     Dosage: ORAL
     Route: 048
  2. ALPRAZOLAM [Suspect]
     Dosage: ORAL
     Route: 048

REACTIONS (1)
  - MULTIPLE DRUG OVERDOSE [None]
